FAERS Safety Report 7497592-5 (Version None)
Quarter: 2011Q2

REPORT INFORMATION
  Report Type: 
  Country: None (occurrence: None)
  Receive Date: 20110523
  Receipt Date: 20110510
  Transmission Date: 20111010
  Serious: Yes (Other)
  Sender: FDA-Public Use
  Company Number: GB-MYLANLABS-2011S1009674

PATIENT
  Age: 40 Year
  Sex: Male

DRUGS (3)
  1. AZATHIOPRINE [Suspect]
     Indication: CROHN'S DISEASE
  2. ADALIMUMAB [Suspect]
     Indication: CROHN'S DISEASE
     Dates: start: 20090701
  3. REMICADE [Suspect]
     Indication: CROHN'S DISEASE
     Dates: start: 20100701, end: 20100701

REACTIONS (1)
  - NODULAR REGENERATIVE HYPERPLASIA [None]
